FAERS Safety Report 6102895-2 (Version None)
Quarter: 2009Q1

REPORT INFORMATION
  Report Type: 
  Country: None (occurrence: None)
  Receive Date: 20090303
  Receipt Date: 20090303
  Transmission Date: 20090719
  Serious: No
  Sender: FDA-Public Use
  Company Number: None

PATIENT
  Age: 22 Year
  Sex: Male

DRUGS (1)
  1. OCYCARBIZAPINE 300MG BID, GLENMARK [Suspect]
     Indication: CONVULSION
     Dosage: 300MG BID ORAL
     Route: 048
     Dates: start: 20090101

REACTIONS (3)
  - DYSPHONIA [None]
  - PRODUCT QUALITY ISSUE [None]
  - RASH [None]
